FAERS Safety Report 11398575 (Version 1)
Quarter: 2015Q3

REPORT INFORMATION
  Report Type: Spontaneous
  Country: US (occurrence: None)
  Receive Date: 20150803
  Receipt Date: 20150803
  Transmission Date: 20151125
  Serious: Yes (Other)
  Sender: FDA-Public Use
  Company Number: CO-OR-US-2014-050

PATIENT
  Age: 75 Year
  Sex: Female

DRUGS (1)
  1. PREDNISOLONE (UNKNOWN) (PREDNISOLONE) [Suspect]
     Active Substance: PREDNISOLONE
     Indication: ANAEMIA

REACTIONS (1)
  - Drug ineffective [None]
